FAERS Safety Report 23262795 (Version 1)
Quarter: 2023Q4

REPORT INFORMATION
  Report Type: Spontaneous
  Country: US (occurrence: US)
  Receive Date: 20231205
  Receipt Date: 20231205
  Transmission Date: 20240110
  Serious: No
  Sender: FDA-Public Use
  Company Number: US-BAYER-2023A173192

PATIENT
  Age: 70 Year
  Sex: Female

DRUGS (3)
  1. ALEVE [Suspect]
     Active Substance: NAPROXEN SODIUM
     Indication: Pain
     Dosage: 2 DF
     Route: 048
     Dates: end: 20231201
  2. ALEVE [Suspect]
     Active Substance: NAPROXEN SODIUM
     Indication: Headache
  3. ALEVE [Suspect]
     Active Substance: NAPROXEN SODIUM
     Indication: Back pain

REACTIONS (1)
  - Drug ineffective [Not Recovered/Not Resolved]

NARRATIVE: CASE EVENT DATE: 20231201
